FAERS Safety Report 8179056-9 (Version None)
Quarter: 2012Q1

REPORT INFORMATION
  Report Type: 
  Country: None (occurrence: None)
  Receive Date: 20120302
  Receipt Date: 20120220
  Transmission Date: 20120608
  Serious: Yes (Other)
  Sender: FDA-Public Use
  Company Number: ES-ROCHE-1044291

PATIENT
  Sex: Female
  Weight: 74 kg

DRUGS (5)
  1. BI 201335 (HCV PROTEASE INHIBITOR) [Suspect]
     Dosage: DRUG REPORTD AS BI 201335 (BI 207127)
     Route: 048
     Dates: start: 20120124
  2. BI 201335 (HCV PROTEASE INHIBITOR) [Suspect]
     Indication: HEPATITIS C
     Route: 048
     Dates: start: 20110124
  3. COPEGUS [Suspect]
     Indication: HEPATITIS C
     Route: 048
     Dates: start: 20110124
  4. BI 207127 [Suspect]
     Indication: HEPATITIS C
     Route: 048
     Dates: start: 20110124
  5. MELOXICAM [Concomitant]
     Route: 048

REACTIONS (2)
  - PHOTOSENSITIVITY REACTION [None]
  - BLISTER [None]
